FAERS Safety Report 4995829-5 (Version None)
Quarter: 2006Q2

REPORT INFORMATION
  Report Type: 
  Country: None (occurrence: None)
  Receive Date: 20060504
  Receipt Date: 20060425
  Transmission Date: 20061013
  Serious: Yes (Hospitalization)
  Sender: FDA-Public Use
  Company Number: 200604531

PATIENT
  Age: 65 Year
  Sex: Female

DRUGS (6)
  1. ALPHAGAN [Suspect]
     Dosage: NI
  2. UTROGESTAN [Concomitant]
  3. TANAKAN [Concomitant]
  4. FLECAINIDE ACETATE [Concomitant]
  5. XALATAN [Concomitant]
  6. PROXALYOC [Concomitant]

REACTIONS (5)
  - ANGINA PECTORIS [None]
  - BONE MARROW FAILURE [None]
  - INFLAMMATION [None]
  - PANCYTOPENIA [None]
  - PYREXIA [None]
